FAERS Safety Report 7244251-X (Version None)
Quarter: 2011Q1

REPORT INFORMATION
  Report Type: 
  Country: None (occurrence: None)
  Receive Date: 20110119
  Receipt Date: 20110119
  Transmission Date: 20110831
  Serious: Yes (Life-Threatening)
  Sender: FDA-Public Use
  Company Number: None

PATIENT
  Age: 32 Year
  Sex: Female
  Weight: 67.586 kg

DRUGS (2)
  1. LISINOPRIL [Suspect]
     Indication: PHARYNGEAL OEDEMA
     Dosage: 7.5 ONCE A DAY PO
     Route: 048
     Dates: start: 20110104, end: 20110117
  2. LISINOPRIL [Suspect]
     Indication: DRUG HYPERSENSITIVITY
     Dosage: 7.5 ONCE A DAY PO
     Route: 048
     Dates: start: 20110104, end: 20110117

REACTIONS (1)
  - DRUG HYPERSENSITIVITY [None]
